FAERS Safety Report 4991208-5 (Version None)
Quarter: 2006Q2

REPORT INFORMATION
  Report Type: 
  Country: None (occurrence: None)
  Receive Date: 20060504
  Receipt Date: 20060119
  Transmission Date: 20061013
  Serious: Yes (Other)
  Sender: FDA-Public Use
  Company Number: JP-ROCHE-432933

PATIENT
  Age: 54 Year
  Sex: Female
  Weight: 58 kg

DRUGS (5)
  1. XELODA [Suspect]
     Indication: BREAST CANCER METASTATIC
     Dosage: DRUG NAME REPORTED AS XELODA 300.
     Route: 048
     Dates: start: 20060110, end: 20060115
  2. XELODA [Suspect]
     Route: 048
     Dates: start: 20060202, end: 20060208
  3. AROMASIN [Suspect]
     Indication: BREAST CANCER METASTATIC
     Route: 048
     Dates: start: 20050723
  4. BLOPRESS [Concomitant]
     Route: 048
     Dates: start: 20040107
  5. LIPITOR [Concomitant]
     Route: 048
     Dates: start: 20040602

REACTIONS (2)
  - DIZZINESS [None]
  - HYPERTENSION [None]
